FAERS Safety Report 21495568 (Version 2)
Quarter: 2025Q3

REPORT INFORMATION
  Report Type: Report from Study
  Country: US (occurrence: US)
  Receive Date: 20221022
  Receipt Date: 20250731
  Transmission Date: 20251021
  Serious: No
  Sender: ABBVIE
  Company Number: US-ABBVIE-4146496

PATIENT
  Age: 57 Year
  Sex: Female

DRUGS (2)
  1. HUMIRA [Suspect]
     Active Substance: ADALIMUMAB
     Indication: Crohn^s disease
     Route: 058
     Dates: start: 20180701
  2. MODERNA COVID-19 VACCINE [Concomitant]
     Active Substance: ELASOMERAN
     Indication: COVID-19 immunisation
     Route: 030
     Dates: start: 20210821, end: 20210821

REACTIONS (5)
  - Noninfective gingivitis [Unknown]
  - Wound [Recovering/Resolving]
  - Vasculitis [Recovering/Resolving]
  - COVID-19 [Unknown]
  - Drug level increased [Unknown]

NARRATIVE: CASE EVENT DATE: 20220301
